FAERS Safety Report 4884696-6 (Version None)
Quarter: 2005Q4

REPORT INFORMATION
  Report Type: 
  Country: None (occurrence: None)
  Receive Date: 20051201
  Receipt Date: 20050920
  Transmission Date: 20060501
  Serious: No
  Sender: FDA-Public Use
  Company Number: 2005PV002396

PATIENT
  Sex: Female

DRUGS (3)
  1. BYETTA [Suspect]
     Indication: DRUG USE FOR UNKNOWN INDICATION
     Dosage: 5 MCG;SC
     Route: 058
     Dates: start: 20050101
  2. COUMADIN [Concomitant]
  3. LANTUS [Concomitant]

REACTIONS (1)
  - INJECTION SITE BRUISING [None]
